FAERS Safety Report 8530047-5 (Version None)
Quarter: 2012Q3

REPORT INFORMATION
  Report Type: 
  Country: None (occurrence: None)
  Receive Date: 20120723
  Receipt Date: 20120717
  Transmission Date: 20120928
  Serious: Yes (Hospitalization)
  Sender: FDA-Public Use
  Company Number: PHEH2012US014147

PATIENT
  Sex: Female
  Weight: 74.83 kg

DRUGS (1)
  1. GLEEVEC [Suspect]
     Indication: GASTRIC CANCER
     Dosage: 400 MG DAILY
     Route: 048

REACTIONS (3)
  - URINARY TRACT INFECTION [None]
  - HYPERHIDROSIS [None]
  - BLOOD GLUCOSE DECREASED [None]
